FAERS Safety Report 10009646 (Version 1)
Quarter: 2014Q1

REPORT INFORMATION
  Report Type: Spontaneous
  Country: US (occurrence: US)
  Receive Date: 20140312
  Receipt Date: 20140312
  Transmission Date: 20141002
  Serious: No
  Sender: FDA-Public Use
  Company Number: US-INCYTE CORPORATION-2012IN002194

PATIENT
  Age: 50 Year
  Sex: Female

DRUGS (6)
  1. JAKAFI [Suspect]
     Indication: MYELOFIBROSIS
     Dosage: 20 MG, BID
     Route: 048
     Dates: start: 20120914, end: 20120927
  2. JAKAFI [Suspect]
     Dosage: 10 MG, BID
     Route: 048
     Dates: start: 20120928, end: 20121023
  3. JAKAFI [Suspect]
     Dosage: 5 MG, BID
     Route: 048
     Dates: start: 20121024
  4. PROPRANOLOL [Concomitant]
  5. SYNTHROID [Concomitant]
  6. AMBIEN [Concomitant]

REACTIONS (4)
  - Pain in extremity [Unknown]
  - Sensation of heaviness [Unknown]
  - Platelet count decreased [Unknown]
  - White blood cell count decreased [Unknown]
